FAERS Safety Report 19041966 (Version 2)
Quarter: 2021Q1

REPORT INFORMATION
  Report Type: Report from Study
  Country: CA (occurrence: CA)
  Receive Date: 20210322
  Receipt Date: 20210324
  Transmission Date: 20210420
  Serious: Yes (Other)
  Sender: FDA-Public Use
  Company Number: CA-IPSEN BIOPHARMACEUTICALS, INC.-2020-11817

PATIENT
  Age: 63 Year
  Sex: Male

DRUGS (16)
  1. XERMELO [Suspect]
     Active Substance: TELOTRISTAT ETHYL
     Indication: 5-HYDROXYINDOLACETIC ACID
     Dates: start: 20201029, end: 20210121
  2. OCTREOTIDE. [Concomitant]
     Active Substance: OCTREOTIDE
     Indication: PROPHYLAXIS
     Route: 058
     Dates: start: 20201020, end: 2020
  3. VITAMIN D [Concomitant]
     Active Substance: VITAMIN D NOS
     Dosage: UNK, ONGOING
  4. RESTORALAX [Concomitant]
     Active Substance: POLYETHYLENE GLYCOL 3350
  5. OCTREOTIDE. [Concomitant]
     Active Substance: OCTREOTIDE
     Route: 058
     Dates: start: 20210122
  6. LASIX [Concomitant]
     Active Substance: FUROSEMIDE
     Dates: start: 20200617
  7. ASPIRIN. [Concomitant]
     Active Substance: ASPIRIN
     Dates: end: 20200513
  8. BABY ASPIRIN [Concomitant]
     Active Substance: ASPIRIN
     Dates: end: 202005
  9. OCTREOTIDE. [Concomitant]
     Active Substance: OCTREOTIDE
     Indication: NEUROENDOCRINE TUMOUR
     Route: 058
  10. CALCIUM [Concomitant]
     Active Substance: CALCIUM
     Dosage: UNK, ONGOING
  11. SOMATULINE AUTOGEL [Suspect]
     Active Substance: LANREOTIDE ACETATE
     Indication: NEUROENDOCRINE TUMOUR
     Route: 058
     Dates: start: 20200506, end: 2020
  12. XERMELO [Suspect]
     Active Substance: TELOTRISTAT ETHYL
     Indication: CARCINOID SYNDROME
     Dates: start: 20210122, end: 20210201
  13. XERMELO [Suspect]
     Active Substance: TELOTRISTAT ETHYL
     Dates: start: 20210202
  14. OCTREOTIDE. [Concomitant]
     Active Substance: OCTREOTIDE
     Indication: FLUSHING
     Route: 058
     Dates: start: 20201107, end: 2020
  15. ATORVASTATIN [Concomitant]
     Active Substance: ATORVASTATIN
     Indication: DYSLIPIDAEMIA
     Dosage: ONGOING
  16. SOMATULINE AUTOGEL [Suspect]
     Active Substance: LANREOTIDE ACETATE
     Route: 058
     Dates: start: 2020

REACTIONS (29)
  - Feeling hot [Recovering/Resolving]
  - Dizziness postural [Not Recovered/Not Resolved]
  - Flushing [Recovered/Resolved]
  - Affect lability [Not Recovered/Not Resolved]
  - Back pain [Not Recovered/Not Resolved]
  - Chills [Recovered/Resolved]
  - Energy increased [Not Recovered/Not Resolved]
  - Constipation [Recovered/Resolved]
  - Malaise [Recovering/Resolving]
  - Musculoskeletal discomfort [Recovering/Resolving]
  - Dyspnoea [Unknown]
  - Drug ineffective [Unknown]
  - Off label use [Unknown]
  - Vessel puncture site induration [Recovering/Resolving]
  - Radial pulse decreased [Recovering/Resolving]
  - Genital haemorrhage [Recovering/Resolving]
  - Pulmonary embolism [Recovering/Resolving]
  - Crying [Unknown]
  - Fatigue [Not Recovered/Not Resolved]
  - Cyanosis [Recovered/Resolved]
  - Off label use [Unknown]
  - Tricuspid valve disease [Not Recovered/Not Resolved]
  - Hypoaesthesia [Recovering/Resolving]
  - Haematoma [Recovering/Resolving]
  - Flushing [Not Recovered/Not Resolved]
  - Irritability [Unknown]
  - Vascular access site haemorrhage [Recovered/Resolved with Sequelae]
  - X-ray abnormal [Not Recovered/Not Resolved]
  - Pain in extremity [Recovering/Resolving]

NARRATIVE: CASE EVENT DATE: 2020
